FAERS Safety Report 23329675 (Version 1)
Quarter: 2023Q4

REPORT INFORMATION
  Report Type: Spontaneous
  Country: CN (occurrence: CN)
  Receive Date: 20231222
  Receipt Date: 20231222
  Transmission Date: 20240109
  Serious: Yes (Hospitalization)
  Sender: FDA-Public Use
  Company Number: CN-ELI_LILLY_AND_COMPANY-CN202312006393

PATIENT
  Age: 53 Year
  Sex: Female

DRUGS (1)
  1. OLANZAPINE [Suspect]
     Active Substance: OLANZAPINE
     Indication: Anxiety
     Route: 048
     Dates: start: 20231122, end: 20231206

REACTIONS (3)
  - Throat tightness [Recovering/Resolving]
  - Rash pruritic [Recovering/Resolving]
  - Off label use [Recovered/Resolved]

NARRATIVE: CASE EVENT DATE: 20231122
